FAERS Safety Report 7250981-6 (Version None)
Quarter: 2011Q1

REPORT INFORMATION
  Report Type: 
  Country: None (occurrence: None)
  Receive Date: 20110128
  Receipt Date: 20110114
  Transmission Date: 20110831
  Serious: Yes (Death, Hospitalization)
  Sender: FDA-Public Use
  Company Number: B0656238A

PATIENT
  Age: 50 Year
  Sex: Male
  Weight: 45.35 kg

DRUGS (15)
  1. LOMOTIL [Concomitant]
     Route: 048
     Dates: start: 20050323
  2. ENSURE PLUS [Concomitant]
     Route: 048
     Dates: start: 20060628
  3. FUZEON [Concomitant]
     Dosage: 90MG TWICE PER DAY
     Dates: start: 20060330, end: 20081112
  4. MARINOL [Concomitant]
     Dosage: 10MG TWICE PER DAY
     Route: 048
     Dates: start: 19950101
  5. PROMETHAZINE HYDROCHLORIDE [Concomitant]
     Dosage: 25MG THREE TIMES PER DAY
     Route: 048
     Dates: start: 20060404
  6. FLEXERIL [Concomitant]
     Dosage: 10MG THREE TIMES PER DAY
     Route: 048
     Dates: start: 20061115
  7. XANAX [Concomitant]
     Dosage: .25MG TWICE PER DAY
     Route: 048
     Dates: start: 20030113
  8. MULTI-VITAMINS [Concomitant]
     Route: 048
     Dates: start: 20050301
  9. NORVIR [Concomitant]
     Dosage: 200MG TWICE PER DAY
     Route: 048
     Dates: start: 20060330
  10. ETRAVIRINE [Concomitant]
     Dosage: 200MG TWICE PER DAY
     Route: 048
     Dates: start: 20081112
  11. TENOFOVIR [Concomitant]
     Dates: start: 20060330, end: 20081112
  12. TIPRANAVIR [Concomitant]
     Dosage: 500MG TWICE PER DAY
     Route: 048
     Dates: start: 20060330, end: 20081112
  13. ISENTRESS [Concomitant]
     Dosage: 400MG TWICE PER DAY
     Route: 048
     Dates: start: 20081112
  14. PREZISTA [Concomitant]
     Dosage: 600MG TWICE PER DAY
     Route: 048
     Dates: start: 20081112
  15. MARAVIROC [Suspect]
     Indication: HIV INFECTION
     Dosage: 150MG PER DAY
     Route: 048
     Dates: start: 20060330, end: 20070228

REACTIONS (2)
  - LOBAR PNEUMONIA [None]
  - COLON CANCER [None]
